FAERS Safety Report 9083173 (Version 3)
Quarter: 2014Q3

REPORT INFORMATION
  Report Type: Report from Study
  Country: US (occurrence: US)
  Receive Date: 20130130
  Receipt Date: 20140701
  Transmission Date: 20150326
  Serious: Yes (Other)
  Sender: FDA-Public Use
  Company Number: US-ALEXION-A201300102

PATIENT

DRUGS (1)
  1. SOLIRIS [Suspect]
     Active Substance: ECULIZUMAB
     Indication: PAROXYSMAL NOCTURNAL HAEMOGLOBINURIA
     Dosage: UNK
     Route: 042

REACTIONS (8)
  - Gait disturbance [Unknown]
  - Packed red blood cell transfusion [Unknown]
  - Pain [Recovering/Resolving]
  - Mental status changes [Recovering/Resolving]
  - Myelodysplastic syndrome [Unknown]
  - Haemoglobin decreased [Recovering/Resolving]
  - Muscle twitching [Unknown]
  - Anger [Unknown]
